FAERS Safety Report 8531036 (Version 3)
Quarter: 2012Q4

REPORT INFORMATION
  Report Type: 
  Country: US (occurrence: US)
  Receive Date: 20120426
  Receipt Date: 20121011
  Transmission Date: 20130627
  Serious: Yes (Hospitalization)
  Sender: FDA-Public Use
  Company Number: US-MYLANLABS-2012S1006549

PATIENT
  Age: 59 Year
  Sex: Male
  Weight: 96.16 kg

DRUGS (8)
  1. VORICONAZOLE TABLETS [Suspect]
     Indication: ASPERGILLOSIS
     Route: 048
     Dates: start: 20120222, end: 20120326
  2. VORICONAZOLE TABLETS [Suspect]
     Indication: RESPIRATORY TRACT INFECTION FUNGAL
     Route: 048
     Dates: start: 20120222, end: 20120326
  3. PREDNISONE [Concomitant]
     Indication: LUNG DISORDER
     Dosage: Tapering doses
     Route: 048
     Dates: start: 201112
  4. LANTUS [Concomitant]
     Indication: DIABETES MELLITUS
  5. HUMALOG [Concomitant]
     Indication: DIABETES MELLITUS
  6. LEVOFLOXACIN [Concomitant]
     Indication: LUNG DISORDER
     Dosage: Times 5 days
     Route: 048
     Dates: start: 201203
  7. ASPIRIN [Concomitant]
  8. ALBUTEROL [Concomitant]
     Route: 055

REACTIONS (3)
  - Atrial fibrillation [Recovered/Resolved]
  - Respiratory tract infection fungal [Not Recovered/Not Resolved]
  - Dyspnoea [Recovered/Resolved]
